FAERS Safety Report 25989132 (Version 1)
Quarter: 2025Q4

REPORT INFORMATION
  Report Type: Spontaneous
  Country: GB (occurrence: GB)
  Receive Date: 20251103
  Receipt Date: 20251103
  Transmission Date: 20260117
  Serious: Yes (Other)
  Sender: ABBVIE
  Company Number: None

PATIENT
  Age: 63 Year
  Sex: Male
  Weight: 98 kg

DRUGS (7)
  1. VENETOCLAX [Suspect]
     Active Substance: VENETOCLAX
     Indication: Adverse drug reaction
     Dosage: 100MG OD
     Route: 048
     Dates: start: 20251006, end: 20251017
  2. Aciclovir accord [Concomitant]
     Indication: Antiviral prophylaxis
     Dates: start: 20251030
  3. METFORMIN [Concomitant]
     Active Substance: METFORMIN HYDROCHLORIDE
     Indication: Adverse drug reaction
  4. POSACONAZOLE [Concomitant]
     Active Substance: POSACONAZOLE
     Indication: Adverse drug reaction
     Dates: start: 20250930
  5. VILDAGLIPTIN [Concomitant]
     Active Substance: VILDAGLIPTIN
     Indication: Adverse drug reaction
  6. BISOPROLOL [Concomitant]
     Active Substance: BISOPROLOL
     Indication: Myocardial ischaemia
  7. AZACITIDINE [Concomitant]
     Active Substance: AZACITIDINE
     Indication: Acute myeloid leukaemia
     Dosage: CYCLE 2
     Dates: start: 20251030

REACTIONS (2)
  - Gingival hypertrophy [Not Recovered/Not Resolved]
  - Mucosal pain [Not Recovered/Not Resolved]

NARRATIVE: CASE EVENT DATE: 20251027
